FAERS Safety Report 8422836-2 (Version None)
Quarter: 2012Q2

REPORT INFORMATION
  Report Type: 
  Country: None (occurrence: None)
  Receive Date: 20120525
  Receipt Date: 20120515
  Transmission Date: 20120825
  Serious: Yes (Other)
  Sender: FDA-Public Use
  Company Number: CA-145087

PATIENT
  Sex: Female

DRUGS (3)
  1. WINRHO [Suspect]
  2. WINRHO [Suspect]
     Indication: PROPHYLAXIS AGAINST RH ISOIMMUNISATION
     Dosage: INTRAVENOUS (NOT OTHERWISE SPECIFIED); INTRAVENOUS (NOT OTHERWISE SPECIFIED)
     Route: 042
     Dates: start: 19860101, end: 19860101
  3. WINRHO [Suspect]
     Indication: PROPHYLAXIS AGAINST RH ISOIMMUNISATION
     Dosage: INTRAVENOUS (NOT OTHERWISE SPECIFIED); INTRAVENOUS (NOT OTHERWISE SPECIFIED)
     Route: 042
     Dates: start: 19880101, end: 19880101

REACTIONS (5)
  - NON-HODGKIN'S LYMPHOMA [None]
  - HEPATITIS C VIRUS TEST POSITIVE [None]
  - PRODUCT CONTAMINATION [None]
  - PREGNANCY [None]
  - MATERNAL EXPOSURE DURING PREGNANCY [None]
